FAERS Safety Report 9516301 (Version 2)
Quarter: 2014Q1

REPORT INFORMATION
  Report Type: Spontaneous
  Country: US (occurrence: None)
  Receive Date: 20130305
  Receipt Date: 20140306
  Transmission Date: 20141002
  Serious: Yes (Hospitalization, Other)
  Sender: FDA-Public Use
  Company Number: 163-21880-12113349

PATIENT
  Age: 60 Year
  Sex: Female

DRUGS (8)
  1. REVLIMIB (LENALIDOMIDE) (CAPSULES) [Suspect]
     Indication: PLASMA CELL MYELOMA
     Dosage: 10 MG, 21 IN 28 D, PO
     Route: 048
     Dates: start: 20110926
  2. DEXAMETHASONE [Concomitant]
  3. SIMVASTATIN [Concomitant]
  4. COQ10 (UBIDECARENONE) [Concomitant]
  5. VITAMIN D3 (COLECALCIFEROL) [Concomitant]
  6. VITAMIN B12 (CYANOCOBALAMIN) [Concomitant]
  7. VITAMIN B1 (THIAMINE HYDROCHLORIDE) [Concomitant]
  8. MULTIVITAMINS [Concomitant]

REACTIONS (13)
  - Viral infection [None]
  - Vomiting [None]
  - Dehydration [None]
  - Hypokalaemia [None]
  - Malaise [None]
  - Seasonal allergy [None]
  - Sinus disorder [None]
  - Pain in extremity [None]
  - Neuropathy peripheral [None]
  - Nausea [None]
  - Abdominal pain [None]
  - Bronchitis [None]
  - Pyrexia [None]
